FAERS Safety Report 10026089 (Version 1)
Quarter: 2014Q1

REPORT INFORMATION
  Report Type: Report from Study
  Country: US (occurrence: US)
  Receive Date: 20140320
  Receipt Date: 20140320
  Transmission Date: 20141002
  Serious: Yes (Other)
  Sender: FDA-Public Use
  Company Number: US-US-EMD SERONO, INC.-7276531

PATIENT
  Age: 50 Year
  Sex: Female

DRUGS (2)
  1. REBIF [Suspect]
     Indication: PRODUCT USED FOR UNKNOWN INDICATION
     Route: 058
     Dates: start: 20080826, end: 20140123
  2. BACLOFEN [Concomitant]
     Indication: PRODUCT USED FOR UNKNOWN INDICATION

REACTIONS (9)
  - Blood bilirubin increased [Unknown]
  - Chromaturia [Unknown]
  - Liver disorder [Unknown]
  - Alanine aminotransferase increased [Unknown]
  - Urinary tract infection [Unknown]
  - Nausea [Unknown]
  - Protein total decreased [Unknown]
  - Limb discomfort [Not Recovered/Not Resolved]
  - Musculoskeletal stiffness [Unknown]
